FAERS Safety Report 18872598 (Version 1)
Quarter: 2021Q1

REPORT INFORMATION
  Report Type: Spontaneous
  Country: CN (occurrence: CN)
  Receive Date: 20210210
  Receipt Date: 20210210
  Transmission Date: 20210420
  Serious: Yes (Hospitalization)
  Sender: FDA-Public Use
  Company Number: CN-GLAXOSMITHKLINE-CN2021APC026847

PATIENT
  Age: 11 Year
  Sex: Female
  Weight: 41 kg

DRUGS (4)
  1. LAMICTAL [Suspect]
     Active Substance: LAMOTRIGINE
     Dosage: 6.25 MG, QD
     Route: 048
     Dates: start: 20210111, end: 20210112
  2. LAMICTAL [Suspect]
     Active Substance: LAMOTRIGINE
     Indication: EPILEPSY
     Dosage: 6.25 MG, BID
     Route: 048
     Dates: start: 20210104, end: 20210111
  3. LAMICTAL [Suspect]
     Active Substance: LAMOTRIGINE
     Dosage: 12.5 MG, QD
     Route: 048
     Dates: start: 20210111, end: 20210112
  4. LEVETIRACETAM. [Concomitant]
     Active Substance: LEVETIRACETAM
     Indication: EPILEPSY
     Dosage: 0.25 G, BID

REACTIONS (4)
  - Hospitalisation [Unknown]
  - Drug hypersensitivity [Unknown]
  - Rash pruritic [Recovered/Resolved]
  - Rash [Recovered/Resolved]

NARRATIVE: CASE EVENT DATE: 20210106
